FAERS Safety Report 9919993 (Version 1)
Quarter: 2014Q1

REPORT INFORMATION
  Report Type: Spontaneous
  Country: US (occurrence: US)
  Receive Date: 20140224
  Receipt Date: 20140224
  Transmission Date: 20141002
  Serious: Yes (Hospitalization)
  Sender: FDA-Public Use
  Company Number: US-ELI_LILLY_AND_COMPANY-US201402005213

PATIENT
  Sex: Female

DRUGS (1)
  1. INSULIN HUMAN [Suspect]
     Indication: TYPE 2 DIABETES MELLITUS
     Dosage: 14 U, BID
     Route: 065
     Dates: start: 201308

REACTIONS (7)
  - Kidney infection [Unknown]
  - Intentional drug misuse [Unknown]
  - Blood glucose increased [Unknown]
  - Appetite disorder [Not Recovered/Not Resolved]
  - Weight increased [Unknown]
  - Abdominal distension [Not Recovered/Not Resolved]
  - Skin disorder [Unknown]
